FAERS Safety Report 8964297 (Version 1)
Quarter: 2012Q4

REPORT INFORMATION
  Report Type: 
  Country: US (occurrence: US)
  Receive Date: 20121213
  Receipt Date: 20121213
  Transmission Date: 20130627
  Serious: No
  Sender: FDA-Public Use
  Company Number: US-009507513-1212USA004148

PATIENT
  Sex: Male

DRUGS (2)
  1. NITRO-DUR [Suspect]
     Indication: CARDIAC DISORDER
     Dosage: 1 DF, qam
     Dates: start: 1977
  2. TOPROL XL TABLETS [Concomitant]

REACTIONS (1)
  - Device difficult to use [Recovered/Resolved]
